FAERS Safety Report 8798426 (Version 1)
Quarter: 2012Q4

REPORT INFORMATION
  Report Type: 
  Country: US (occurrence: US)
  Receive Date: 20120920
  Receipt Date: 20120920
  Transmission Date: 20130627
  Serious: No
  Sender: FDA-Public Use
  Company Number: US-B.I. PHARMACEUTICALS,INC./RIDGEFIELD-2012-BP-22417BP

PATIENT
  Age: 70 Year
  Sex: Male

DRUGS (6)
  1. PRADAXA [Suspect]
     Indication: ATRIAL FIBRILLATION
     Dosage: 300 mg
     Route: 048
     Dates: start: 201201
  2. LISINOPRIL [Concomitant]
     Indication: HYPERTENSION
     Dosage: 40 mg
     Route: 048
  3. DIURETIC [Concomitant]
     Indication: HYPERTENSION
     Dosage: 20 mg
     Route: 048
  4. NIFEDIPINE [Concomitant]
     Indication: HYPERTENSION
     Dosage: 60 mg
     Route: 048
  5. ATENOLOL [Concomitant]
     Indication: HYPERTENSION
     Dosage: 100 mg
     Route: 048
  6. POTASSIUM [Concomitant]
     Indication: CARDIAC DISORDER

REACTIONS (3)
  - Blood urine present [Not Recovered/Not Resolved]
  - Contusion [Not Recovered/Not Resolved]
  - Prostatic specific antigen increased [Unknown]
